FAERS Safety Report 7291237-5 (Version None)
Quarter: 2011Q1

REPORT INFORMATION
  Report Type: 
  Country: None (occurrence: None)
  Receive Date: 20110214
  Receipt Date: 20110202
  Transmission Date: 20110831
  Serious: Yes (Hospitalization)
  Sender: FDA-Public Use
  Company Number: US-JNJFOC-20110201411

PATIENT
  Age: 79 Year
  Sex: Female
  Weight: 59.42 kg

DRUGS (6)
  1. CLARITIN [Concomitant]
  2. TYLENOL-500 [Suspect]
     Route: 048
  3. TYLENOL-500 [Suspect]
     Indication: ARTHRALGIA
     Route: 048
  4. BENADRYL [Suspect]
     Indication: PRODUCT USED FOR UNKNOWN INDICATION
  5. ASPIRIN [Suspect]
     Indication: CARDIOVASCULAR EVENT PROPHYLAXIS
     Route: 048
  6. ARTHRITIS INJECTION [Concomitant]
     Indication: ARTHRALGIA

REACTIONS (2)
  - CARDIAC FAILURE CONGESTIVE [None]
  - PRODUCT QUALITY ISSUE [None]
